FAERS Safety Report 5770384-0 (Version None)
Quarter: 2008Q2

REPORT INFORMATION
  Report Type: 
  Country: None (occurrence: None)
  Receive Date: 20080613
  Receipt Date: 20080430
  Transmission Date: 20081010
  Serious: No
  Sender: FDA-Public Use
  Company Number: US-ABBOTT-08P-163-0450001-00

PATIENT
  Sex: Female
  Weight: 57.658 kg

DRUGS (5)
  1. HUMIRA [Suspect]
     Indication: CROHN'S DISEASE
     Route: 058
     Dates: start: 20080301
  2. MULTI-VITAMIN [Concomitant]
     Indication: VITAMIN SUPPLEMENTATION
     Route: 048
     Dates: start: 20080401
  3. CALCIUM [Concomitant]
     Indication: MINERAL SUPPLEMENTATION
     Route: 048
     Dates: start: 20071201
  4. BIRTH CONTROL [Concomitant]
     Indication: CONTRACEPTION
     Route: 048
  5. BALSALAZIDE DISODIUM [Concomitant]
     Indication: CROHN'S DISEASE
     Dates: start: 20080201

REACTIONS (2)
  - INJECTION SITE IRRITATION [None]
  - PAIN IN EXTREMITY [None]
